FAERS Safety Report 19910666 (Version 1)
Quarter: 2021Q4

REPORT INFORMATION
  Report Type: Spontaneous
  Country: US (occurrence: US)
  Receive Date: 20211004
  Receipt Date: 20211004
  Transmission Date: 20220303
  Serious: No
  Sender: FDA-Public Use
  Company Number: US-DRREDDYS-SPO/USA/21/0142267

PATIENT
  Age: 46 Year
  Sex: Male

DRUGS (1)
  1. ACCUTANE [Suspect]
     Active Substance: ISOTRETINOIN
     Indication: Product used for unknown indication
     Dosage: RMA ISSUE DATE: 4/MAY/2021 6:20:26 PM, 15/JUN/2021 6:10:23 PM AND 30/AUG/2021 4:45:22 PM

REACTIONS (1)
  - Dry eye [Unknown]
